FAERS Safety Report 8242539-7 (Version None)
Quarter: 2012Q1

REPORT INFORMATION
  Report Type: 
  Country: None (occurrence: None)
  Receive Date: 20120329
  Receipt Date: 20120319
  Transmission Date: 20120608
  Serious: Yes (Hospitalization, Other)
  Sender: FDA-Public Use
  Company Number: PHHY2012CA022772

PATIENT
  Sex: Male

DRUGS (1)
  1. CLOZARIL [Suspect]
     Dates: start: 20060518

REACTIONS (7)
  - EOSINOPHIL COUNT INCREASED [None]
  - HAEMOGLOBIN DECREASED [None]
  - GAMMA-GLUTAMYLTRANSFERASE INCREASED [None]
  - NON-HODGKIN'S LYMPHOMA [None]
  - RED BLOOD CELL COUNT DECREASED [None]
  - MEAN PLATELET VOLUME DECREASED [None]
  - HAEMATOCRIT DECREASED [None]
